FAERS Safety Report 5217490-7 (Version None)
Quarter: 2007Q1

REPORT INFORMATION
  Report Type: 
  Country: None (occurrence: None)
  Receive Date: 20070124
  Receipt Date: 20070116
  Transmission Date: 20070707
  Serious: Yes (Hospitalization)
  Sender: FDA-Public Use
  Company Number: FR-SANOFI-SYNTHELABO-A02200700099

PATIENT
  Age: 55 Year
  Sex: Female
  Weight: 65 kg

DRUGS (4)
  1. AVLOCARDYL [Suspect]
     Indication: DRUG USE FOR UNKNOWN INDICATION
     Route: 048
     Dates: start: 20030101
  2. OESCLIM [Suspect]
     Indication: MENOPAUSE
     Dosage: 2 PACHES NOS WEEKLY
     Route: 062
     Dates: start: 20000101, end: 20050812
  3. ESBERIVEN [Suspect]
     Indication: VENOUS INSUFFICIENCY
     Dosage: 2 DF
     Route: 048
     Dates: start: 20050601
  4. ZOLPIDEM TARTRATE [Suspect]
     Indication: DRUG USE FOR UNKNOWN INDICATION
     Route: 048
     Dates: start: 20030101

REACTIONS (2)
  - CEREBROVASCULAR ACCIDENT [None]
  - HYPERCHOLESTEROLAEMIA [None]
